FAERS Safety Report 9841455 (Version 1)
Quarter: 2014Q1

REPORT INFORMATION
  Report Type: Spontaneous
  Country: US (occurrence: None)
  Receive Date: 20140123
  Receipt Date: 20140123
  Transmission Date: 20141002
  Serious: No
  Sender: FDA-Public Use
  Company Number: None

PATIENT
  Age: 64 Year
  Sex: Male

DRUGS (1)
  1. ENDOCET [Suspect]
     Dosage: 10/325 BY MOUTH EVERY 6 HOURS
     Route: 048

REACTIONS (3)
  - Glossodynia [None]
  - Tongue exfoliation [None]
  - Product substitution issue [None]
